FAERS Safety Report 8612941-X (Version None)
Quarter: 2012Q3

REPORT INFORMATION
  Report Type: 
  Country: None (occurrence: None)
  Receive Date: 20120822
  Receipt Date: 20120814
  Transmission Date: 20120928
  Serious: Yes (Disabling)
  Sender: FDA-Public Use
  Company Number: CHPA2012US017905

PATIENT
  Age: 84 Year
  Sex: Female

DRUGS (1)
  1. VOLTAREN [Suspect]
     Indication: OSTEOARTHRITIS
     Dosage: 4 G, QD
     Route: 061
     Dates: start: 20120804, end: 20120807

REACTIONS (4)
  - UNDERDOSE [None]
  - ANXIETY [None]
  - BLOOD PRESSURE INCREASED [None]
  - GAIT DISTURBANCE [None]
